FAERS Safety Report 5279366-9 (Version None)
Quarter: 2007Q1

REPORT INFORMATION
  Report Type: 
  Country: None (occurrence: None)
  Receive Date: 20070328
  Receipt Date: 20060201
  Transmission Date: 20070707
  Serious: No
  Sender: FDA-Public Use
  Company Number: US-AMGEN-US144019

PATIENT
  Sex: Female
  Weight: 107.6 kg

DRUGS (7)
  1. NEULASTA [Suspect]
     Indication: CHEMOTHERAPY
     Route: 065
     Dates: start: 20050722
  2. COUMADIN [Concomitant]
     Route: 065
  3. PREDNISONE [Concomitant]
     Route: 065
  4. ADRIAMYCIN PFS [Concomitant]
     Route: 065
     Dates: start: 20050721
  5. BLEOMYCIN [Concomitant]
     Route: 065
     Dates: start: 20050721
  6. VINBLASTINE SULFATE [Concomitant]
     Route: 065
     Dates: start: 20050721
  7. DACARBAZINE [Concomitant]
     Route: 065
     Dates: start: 20050721

REACTIONS (4)
  - INTERNATIONAL NORMALISED RATIO INCREASED [None]
  - SWOLLEN TONGUE [None]
  - URTICARIA [None]
  - WHEEZING [None]
